FAERS Safety Report 5402597-1 (Version None)
Quarter: 2007Q3

REPORT INFORMATION
  Report Type: 
  Country: None (occurrence: None)
  Receive Date: 20070801
  Receipt Date: 20070208
  Transmission Date: 20080115
  Serious: Yes (Life-Threatening, Hospitalization, Disabling, Other)
  Sender: FDA-Public Use
  Company Number: A0638891A

PATIENT
  Age: 54 Year
  Sex: Female

DRUGS (6)
  1. IMITREX [Suspect]
     Indication: MIGRAINE
     Dosage: 100MG AS REQUIRED
     Route: 048
     Dates: end: 20070201
  2. CELEXA [Suspect]
     Indication: DRUG USE FOR UNKNOWN INDICATION
     Dosage: 80MG UNKNOWN
     Route: 048
  3. ESTROGENIC SUBSTANCE [Concomitant]
  4. TOPAMAX [Concomitant]
  5. BUSPIRONE HCL [Concomitant]
  6. TRIAMTEREN + HYDROCHLOROTHIAZID [Concomitant]

REACTIONS (5)
  - DYSPNOEA [None]
  - NAUSEA [None]
  - SEROTONIN SYNDROME [None]
  - TACHYCARDIA [None]
  - TREMOR [None]
